FAERS Safety Report 17741667 (Version 1)
Quarter: 2020Q2

REPORT INFORMATION
  Report Type: Spontaneous
  Country: US (occurrence: US)
  Receive Date: 20200504
  Receipt Date: 20200504
  Transmission Date: 20200714
  Serious: Yes (Other)
  Sender: FDA-Public Use
  Company Number: US-NOVOPROD-725765

PATIENT
  Age: 67 Year
  Sex: Female

DRUGS (3)
  1. TRESIBA [Suspect]
     Active Substance: INSULIN DEGLUDEC
     Dosage: DOWN FROM 90 UNITS TO  6 UNITS
     Route: 058
  2. TRESIBA [Suspect]
     Active Substance: INSULIN DEGLUDEC
     Indication: PRODUCT USED FOR UNKNOWN INDICATION
     Dosage: 6 IU, QD
     Route: 058
  3. NOVOLOG [Suspect]
     Active Substance: INSULIN ASPART
     Indication: PRODUCT USED FOR UNKNOWN INDICATION
     Dosage: 1 UNIT IF SUGAR LEVEL IS HIGHER THAN 225
     Route: 058

REACTIONS (11)
  - Myocardial infarction [Unknown]
  - Psoriasis [Unknown]
  - Osteoporosis [Unknown]
  - Fibromyalgia [Unknown]
  - Sleep disorder [Unknown]
  - Multiple sclerosis [Unknown]
  - Blood glucose decreased [Unknown]
  - Limb injury [Unknown]
  - Accident [Unknown]
  - Autoimmune disorder [Unknown]
  - Blood glucose increased [Unknown]

NARRATIVE: CASE EVENT DATE: 2010
